FAERS Safety Report 14270665 (Version 1)
Quarter: 2017Q4

REPORT INFORMATION
  Report Type: Spontaneous
  Country: IT (occurrence: IT)
  Receive Date: 20171211
  Receipt Date: 20171211
  Transmission Date: 20180321
  Serious: Yes (Other)
  Sender: FDA-Public Use
  Company Number: IT-OTSUKA-2016_008186

PATIENT
  Age: 43 Year
  Sex: Female

DRUGS (2)
  1. CONGESCOR [Concomitant]
     Active Substance: BISOPROLOL
     Indication: HYPERTENSION
     Dosage: 2.5 MG, UNK
     Route: 065
  2. ABILIFY [Suspect]
     Active Substance: ARIPIPRAZOLE
     Indication: PSYCHOTIC DISORDER
     Dosage: UNK
     Route: 048

REACTIONS (6)
  - Wrong technique in product usage process [Unknown]
  - Bulimia nervosa [Unknown]
  - Increased appetite [Unknown]
  - Treatment noncompliance [Unknown]
  - Hunger [Unknown]
  - Product use in unapproved indication [Unknown]
